FAERS Safety Report 22375019 (Version 1)
Quarter: 2023Q2

REPORT INFORMATION
  Report Type: Spontaneous
  Country: CN (occurrence: CN)
  Receive Date: 20230527
  Receipt Date: 20230527
  Transmission Date: 20230721
  Serious: Yes (Hospitalization)
  Sender: FDA-Public Use
  Company Number: CN-002147023-NVSC2023CN118566

PATIENT
  Age: 78 Year
  Sex: Male
  Weight: 33 kg

DRUGS (1)
  1. CERITINIB [Suspect]
     Active Substance: CERITINIB
     Indication: Neoplasm
     Dosage: 0.45 G, QD
     Route: 048
     Dates: start: 20230328, end: 20230412

REACTIONS (4)
  - Pruritus [Recovering/Resolving]
  - Rash [Recovering/Resolving]
  - Lung adenocarcinoma [Unknown]
  - Skin exfoliation [Recovering/Resolving]

NARRATIVE: CASE EVENT DATE: 20230421
